FAERS Safety Report 26123162 (Version 1)
Quarter: 2025Q4

REPORT INFORMATION
  Report Type: Report from Study
  Country: US (occurrence: US)
  Receive Date: 20251204
  Receipt Date: 20251204
  Transmission Date: 20260118
  Serious: Yes (Other)
  Sender: ABBVIE
  Company Number: US-ABBVIE-6568386

PATIENT
  Age: 70 Year
  Sex: Female

DRUGS (1)
  1. RINVOQ [Suspect]
     Active Substance: UPADACITINIB
     Indication: Rheumatoid arthritis
     Route: 048
     Dates: start: 20250531

REACTIONS (5)
  - Haemoptysis [Unknown]
  - Epistaxis [Unknown]
  - Nasal congestion [Unknown]
  - Sinus congestion [Unknown]
  - Throat clearing [Unknown]

NARRATIVE: CASE EVENT DATE: 20250101
